FAERS Safety Report 8137507-X (Version None)
Quarter: 2012Q1

REPORT INFORMATION
  Report Type: 
  Country: None (occurrence: None)
  Receive Date: 20120215
  Receipt Date: 20120207
  Transmission Date: 20120608
  Serious: Yes (Other)
  Sender: FDA-Public Use
  Company Number: US-US-EMD SERONO, INC.-7093136

PATIENT
  Sex: Female
  Weight: 91 kg

DRUGS (2)
  1. AMPYRA [Concomitant]
     Indication: FALL
     Dates: start: 20120101
  2. REBIF [Suspect]
     Indication: MULTIPLE SCLEROSIS
     Route: 058
     Dates: start: 20100816

REACTIONS (3)
  - INJECTION SITE HAEMATOMA [None]
  - INFLUENZA LIKE ILLNESS [None]
  - BLADDER DISORDER [None]
